FAERS Safety Report 16201415 (Version 1)
Quarter: 2019Q2

REPORT INFORMATION
  Report Type: Spontaneous
  Country: US (occurrence: US)
  Receive Date: 20190415
  Receipt Date: 20190415
  Transmission Date: 20190711
  Serious: Yes (Hospitalization)
  Sender: FDA-Public Use
  Company Number: None

PATIENT
  Age: 66 Year
  Sex: Male

DRUGS (16)
  1. MAG OXIDE TAB 400MG [Concomitant]
  2. PROTONIX TAB 40MG [Concomitant]
  3. ATORVASTATIN TAB 40MG [Concomitant]
  4. CANASA SUP 1000MG [Concomitant]
  5. ENTRESTO TAB 49-51MG [Concomitant]
  6. GEMFIBROZIL TAB 600MG [Concomitant]
  7. URO-MAG CAP 140MG [Concomitant]
  8. VALSARTAN TAB 320MG [Concomitant]
     Active Substance: VALSARTAN
  9. HUMIRA [Suspect]
     Active Substance: ADALIMUMAB
     Indication: PROCTITIS ULCERATIVE
     Dosage: ?          OTHER FREQUENCY:ONCE WEEKLY;?
     Route: 058
     Dates: start: 20151020
  10. CARVEDILOL TAB 6.25MG [Concomitant]
     Active Substance: CARVEDILOL
  11. SOTALOL HCL TAB 120MG [Concomitant]
  12. MECLIZINE TAB 12.5MG [Concomitant]
  13. VALIUM TAB 5MG [Concomitant]
  14. DULOXETINE CAP 60MG [Concomitant]
  15. VITAMIN B12 TAB 500MCG [Concomitant]
  16. CYMBALTA CAP 30MG [Concomitant]

REACTIONS (3)
  - Condition aggravated [None]
  - Diarrhoea [None]
  - Needle issue [None]

NARRATIVE: CASE EVENT DATE: 20190413
